APPROVED DRUG PRODUCT: OMEPRAZOLE AND SODIUM BICARBONATE
Active Ingredient: OMEPRAZOLE; SODIUM BICARBONATE
Strength: 20MG;1.1GM
Dosage Form/Route: CAPSULE;ORAL
Application: A204228 | Product #001 | TE Code: AB
Applicant: AJANTA PHARMA LTD
Approved: Jul 15, 2016 | RLD: No | RS: No | Type: RX